FAERS Safety Report 6785236-7 (Version None)
Quarter: 2010Q2

REPORT INFORMATION
  Report Type: 
  Country: None (occurrence: None)
  Receive Date: 20100622
  Receipt Date: 20100622
  Transmission Date: 20101027
  Serious: Yes (Other)
  Sender: FDA-Public Use
  Company Number: None

PATIENT
  Age: 36 Year
  Weight: 77.1115 kg

DRUGS (1)
  1. BUPROPION HCL [Suspect]
     Dosage: 150 MG 2 TIMES A DAY PO
     Route: 048

REACTIONS (6)
  - AMNESIA [None]
  - COGNITIVE DISORDER [None]
  - HEADACHE [None]
  - INSOMNIA [None]
  - MENTAL DISORDER [None]
  - PRODUCT SUBSTITUTION ISSUE [None]
